FAERS Safety Report 16756516 (Version 6)
Quarter: 2022Q4

REPORT INFORMATION
  Report Type: Report from Study
  Country: FR (occurrence: FR)
  Receive Date: 20190829
  Receipt Date: 20221026
  Transmission Date: 20230112
  Serious: Yes (Death, Other)
  Sender: FDA-Public Use
  Company Number: FR-JAZZ-2019-FR-012126

PATIENT

DRUGS (12)
  1. DEFITELIO [Suspect]
     Active Substance: DEFIBROTIDE SODIUM
     Indication: Venoocclusive disease
     Dosage: 24.23 MG/KG, QD
     Dates: start: 20190412, end: 20190430
  2. DEFITELIO [Suspect]
     Active Substance: DEFIBROTIDE SODIUM
     Dosage: 19.20 MG/KG, QD
     Dates: start: 20190430
  3. DEFITELIO [Suspect]
     Active Substance: DEFIBROTIDE SODIUM
     Dosage: 6.48 MG/KG, QD
     Dates: end: 20190502
  4. DEFITELIO [Suspect]
     Active Substance: DEFIBROTIDE SODIUM
     Dosage: 20 MG/KG, QD
     Dates: start: 20190816, end: 20190818
  5. DEFITELIO [Suspect]
     Active Substance: DEFIBROTIDE SODIUM
     Dosage: 25 MG/KG, QD
     Dates: start: 20190818
  6. CANRENOATE POTASSIUM\TROMETHAMINE [Suspect]
     Active Substance: CANRENOATE POTASSIUM\TROMETHAMINE
     Indication: Venoocclusive liver disease
     Dosage: UNK
  7. VALACYCLOVIR HYDROCHLORIDE [Suspect]
     Active Substance: VALACYCLOVIR HYDROCHLORIDE
     Indication: Product used for unknown indication
     Dosage: 1000 MG
     Route: 048
     Dates: start: 20190715
  8. AMPHOTERICIN B [Suspect]
     Active Substance: AMPHOTERICIN B
     Indication: Product used for unknown indication
     Dosage: 3 MG/KG, 3 TIMES PER WEEK
     Route: 042
  9. SKENAN [Suspect]
     Active Substance: MORPHINE SULFATE
     Indication: Product used for unknown indication
     Dosage: 20 MG
  10. CILASTATIN SODIUM\IMIPENEM [Suspect]
     Active Substance: CILASTATIN SODIUM\IMIPENEM
     Indication: Product used for unknown indication
     Dosage: 85 MG/KG
     Dates: start: 20190723
  11. AMPHOTERICIN B [Suspect]
     Active Substance: AMPHOTERICIN B
     Indication: Product used for unknown indication
     Dosage: 3 MG/KG 3 TIMES PER WEEK
     Route: 042
  12. METHOTREXATE [Concomitant]
     Active Substance: METHOTREXATE
     Indication: Product used for unknown indication
     Dosage: UNK

REACTIONS (9)
  - Bronchopulmonary aspergillosis [Unknown]
  - Burkholderia cepacia complex infection [Unknown]
  - Acute graft versus host disease [Fatal]
  - Respiratory failure [Fatal]
  - Purpura [Fatal]
  - Ecchymosis [Fatal]
  - Epistaxis [Fatal]
  - Graft versus host disease in gastrointestinal tract [Recovering/Resolving]
  - Off label use [Unknown]

NARRATIVE: CASE EVENT DATE: 20190412
